FAERS Safety Report 5388624-9 (Version None)
Quarter: 2007Q3

REPORT INFORMATION
  Report Type: 
  Country: None (occurrence: None)
  Receive Date: 20070711
  Receipt Date: 20070702
  Transmission Date: 20080115
  Serious: Yes (Death)
  Sender: FDA-Public Use
  Company Number: 2007SP013294

PATIENT
  Age: 44 Year
  Sex: Female

DRUGS (2)
  1. DIPROPHOS (BETAMETHASONE SODIUM PHOSPHATE/ DIPROPIONATE) (BETAMETHASON [Suspect]
     Indication: BACK PAIN
     Dates: start: 20070601
  2. LIDOCAINE HCL [Suspect]
     Indication: BACK PAIN
     Dates: start: 20070601

REACTIONS (1)
  - POST PROCEDURAL COMPLICATION [None]
